FAERS Safety Report 13932999 (Version 1)
Quarter: 2017Q3

REPORT INFORMATION
  Report Type: Other
  Country: US (occurrence: US)
  Receive Date: 20170904
  Receipt Date: 20170904
  Transmission Date: 20171127
  Serious: Yes (Hospitalization, Other)
  Sender: FDA-Public Use
  Company Number: US-VELOXIS PHARMACEUTICALS-2025526

PATIENT
  Age: 63 Year
  Sex: Male

DRUGS (2)
  1. ENVARSUS XR [Suspect]
     Active Substance: TACROLIMUS
     Indication: HEART TRANSPLANT
  2. PREDNISONE. [Suspect]
     Active Substance: PREDNISONE

REACTIONS (2)
  - Primary effusion lymphoma [Unknown]
  - Intentional product use issue [Unknown]
